FAERS Safety Report 9055594 (Version 2)
Quarter: 2013Q3

REPORT INFORMATION
  Report Type: Report from Study
  Country: US (occurrence: US)
  Receive Date: 20130206
  Receipt Date: 20130830
  Transmission Date: 20140515
  Serious: Yes (Hospitalization)
  Sender: FDA-Public Use
  Company Number: PHHO2010US19257

PATIENT
  Age: 90 Year
  Sex: Male

DRUGS (8)
  1. CLONIDINE [Suspect]
  2. HYDROCHLOROTHIAZIDE SANDOZ [Suspect]
  3. ALISKIREN [Suspect]
     Indication: CARDIOVASCULAR DISORDER
     Route: 048
     Dates: start: 20080711, end: 20100519
  4. TOPROL XL [Suspect]
     Indication: HYPERTENSION
     Dosage: 100 MG, QD
     Route: 048
     Dates: start: 20060224, end: 20110324
  5. BENICAR HCT [Suspect]
     Indication: HYPERTENSION
     Dosage: 40-25 MG, QD
     Route: 048
     Dates: start: 20050823, end: 20110324
  6. LASIX [Suspect]
     Indication: HYPERTENSION
     Dosage: 20 MG, QD
     Dates: start: 20040128, end: 20110324
  7. JANUVIA [Suspect]
  8. HYDRAZINE [Suspect]
     Indication: HYPERTENSION
     Dosage: 25 MG, TID
     Dates: start: 20101216, end: 20110323

REACTIONS (13)
  - Orthostatic hypotension [Recovered/Resolved]
  - Asthenia [Recovered/Resolved]
  - Dizziness [Recovered/Resolved]
  - Vitamin B12 deficiency [Recovered/Resolved]
  - Neuropathy peripheral [Recovered/Resolved]
  - Dehydration [Recovered/Resolved]
  - Haematoma [Recovered/Resolved]
  - Pancytopenia [Recovered/Resolved]
  - Iron deficiency anaemia [Recovered/Resolved]
  - Fall [Recovered/Resolved]
  - Atrial fibrillation [Not Recovered/Not Resolved]
  - Renal failure acute [Recovered/Resolved]
  - Dyspnoea [Recovered/Resolved]
